APPROVED DRUG PRODUCT: DIHYDROERGOTAMINE MESYLATE
Active Ingredient: DIHYDROERGOTAMINE MESYLATE
Strength: 1MG/ML
Dosage Form/Route: INJECTABLE;INJECTION
Application: A212334 | Product #001
Applicant: CIPLA LTD
Approved: Sep 20, 2024 | RLD: No | RS: No | Type: DISCN